FAERS Safety Report 7756321-8 (Version None)
Quarter: 2011Q3

REPORT INFORMATION
  Report Type: 
  Country: None (occurrence: None)
  Receive Date: 20110916
  Receipt Date: 20110913
  Transmission Date: 20111222
  Serious: Yes (Hospitalization, Other)
  Sender: FDA-Public Use
  Company Number: US-SANOFI-AVENTIS-2011SA050746

PATIENT
  Age: 67 Year
  Sex: Male

DRUGS (4)
  1. SOLOSTAR [Suspect]
     Indication: TYPE 1 DIABETES MELLITUS
     Dates: start: 20110501
  2. ORAL ANTIDIABETICS [Concomitant]
     Dosage: DECEMBER (2010), JANUARY OR FEBRUARY OF 2011
  3. LANTUS [Suspect]
     Indication: TYPE 1 DIABETES MELLITUS
     Dosage: DOSE:10 UNIT(S)
     Route: 058
     Dates: start: 20110501
  4. LANTUS [Suspect]
     Dosage: DOSE:30 UNIT(S)
     Route: 058
     Dates: start: 20110101

REACTIONS (7)
  - BLOOD GLUCOSE INCREASED [None]
  - THROMBOSIS [None]
  - VASCULAR GRAFT [None]
  - DECUBITUS ULCER [None]
  - GANGRENE [None]
  - ABASIA [None]
  - HAEMOGLOBIN DECREASED [None]
